FAERS Safety Report 25500140 (Version 2)
Quarter: 2025Q3

REPORT INFORMATION
  Report Type: Spontaneous
  Country: EU (occurrence: EU)
  Receive Date: 20250701
  Receipt Date: 20250903
  Transmission Date: 20251020
  Serious: Yes (Hospitalization)
  Sender: NOVARTIS
  Company Number: None

PATIENT
  Age: 51 Year
  Sex: Female
  Weight: 70 kg

DRUGS (2)
  1. MEKINIST [Suspect]
     Active Substance: TRAMETINIB DIMETHYL SULFOXIDE
     Indication: Malignant melanoma stage IV
     Route: 048
     Dates: start: 20250417, end: 20250430
  2. TAFINLAR [Suspect]
     Active Substance: DABRAFENIB MESYLATE
     Indication: Superficial spreading melanoma stage IV
     Route: 048
     Dates: start: 20250417, end: 20250430

REACTIONS (4)
  - Acute kidney injury [Recovering/Resolving]
  - Septic shock [Recovered/Resolved with Sequelae]
  - Diarrhoea [Recovering/Resolving]
  - Abdominal pain [Recovering/Resolving]

NARRATIVE: CASE EVENT DATE: 20250430
